FAERS Safety Report 4339075-7 (Version None)
Quarter: 2004Q2

REPORT INFORMATION
  Report Type: 
  Country: None (occurrence: None)
  Receive Date: 20040412
  Receipt Date: 20040329
  Transmission Date: 20050107
  Serious: Yes (Other)
  Sender: FDA-Public Use
  Company Number: 2004021619

PATIENT
  Age: 63 Year
  Sex: Male
  Weight: 106 kg

DRUGS (10)
  1. VFEND [Suspect]
     Indication: FUNGAL SEPSIS
     Dosage: 1280 MG (BID), INTRAVENOUS
     Route: 042
     Dates: start: 20040326, end: 20040326
  2. METFORMIN HCL [Suspect]
     Indication: DIABETES MELLITUS
  3. GLYBURIDE [Suspect]
     Indication: DIABETES MELLITUS
  4. PIOGLITAZONE HCL [Suspect]
     Indication: DIABETES MELLITUS
  5. LEVOFLOXACION (LEVOFLOXACIN) [Concomitant]
  6. ACETYLSALICYLIC ACID SRT [Concomitant]
  7. ALLOPURINOL [Concomitant]
  8. ATENOLOL [Concomitant]
  9. LANSOPRAZOLE [Concomitant]
  10. TOCOPHEROL CONCENTRATE CAP [Concomitant]

REACTIONS (4)
  - BLOOD GLUCOSE DECREASED [None]
  - DRUG INTERACTION [None]
  - MANIA [None]
  - MARKEDLY REDUCED DIETARY INTAKE [None]
